FAERS Safety Report 10797678 (Version 2)
Quarter: 2015Q1

REPORT INFORMATION
  Report Type: Spontaneous
  Country: US (occurrence: US)
  Receive Date: 20150216
  Receipt Date: 20150227
  Transmission Date: 20150721
  Serious: No
  Sender: FDA-Public Use
  Company Number: US-PFIZER INC-2015045748

PATIENT
  Age: 69 Year
  Sex: Female

DRUGS (2)
  1. NORPACE [Suspect]
     Active Substance: DISOPYRAMIDE PHOSPHATE
     Indication: HEART RATE IRREGULAR
     Dosage: 300 MG, 2X/DAY
     Dates: start: 1983
  2. NORPACE [Suspect]
     Active Substance: DISOPYRAMIDE PHOSPHATE
     Dosage: 100 UNK, UNK

REACTIONS (1)
  - Cough [Unknown]
